FAERS Safety Report 7328639-4 (Version None)
Quarter: 2011Q1

REPORT INFORMATION
  Report Type: 
  Country: None (occurrence: None)
  Receive Date: 20110225
  Receipt Date: 20110225
  Transmission Date: 20110831
  Serious: Yes (Other)
  Sender: FDA-Public Use
  Company Number: None

PATIENT
  Age: 59 Year
  Sex: Female
  Weight: 72.5755 kg

DRUGS (1)
  1. TOBRADEX ST [Suspect]
     Indication: CHALAZION
     Dosage: 1 DROP TWO TIMES P/DAY
     Dates: start: 20110223, end: 20110224

REACTIONS (7)
  - HEADACHE [None]
  - HAEMORRHAGIC DIATHESIS [None]
  - BLOOD PRESSURE SYSTOLIC INCREASED [None]
  - INAPPROPRIATE SCHEDULE OF DRUG ADMINISTRATION [None]
  - COAGULOPATHY [None]
  - LACERATION [None]
  - TREATMENT NONCOMPLIANCE [None]
